FAERS Safety Report 20428693 (Version 1)
Quarter: 2022Q1

REPORT INFORMATION
  Report Type: Spontaneous
  Country: BR (occurrence: BR)
  Receive Date: 20220204
  Receipt Date: 20220204
  Transmission Date: 20220423
  Serious: Yes (Death, Other)
  Sender: FDA-Public Use
  Company Number: BR-ASTELLAS-2022US004222

PATIENT
  Age: 85 Year
  Sex: Male

DRUGS (1)
  1. XTANDI [Suspect]
     Active Substance: ENZALUTAMIDE
     Indication: Prostate cancer
     Dosage: 4 DF (CAPSULES), ONCE DAILY
     Route: 065
     Dates: start: 20211109, end: 20220129

REACTIONS (1)
  - Death [Fatal]

NARRATIVE: CASE EVENT DATE: 20220129
